FAERS Safety Report 6779120-2 (Version None)
Quarter: 2010Q2

REPORT INFORMATION
  Report Type: 
  Country: None (occurrence: None)
  Receive Date: 20100618
  Receipt Date: 20100614
  Transmission Date: 20101027
  Serious: Yes (Other)
  Sender: FDA-Public Use
  Company Number: US-PFIZER INC-2010075229

PATIENT
  Sex: Female
  Weight: 96.615 kg

DRUGS (2)
  1. DETROL LA [Suspect]
     Indication: NEUROGENIC BLADDER
     Dosage: 4 MG, 1X/DAY
     Dates: start: 19900101
  2. PREDNISONE [Suspect]
     Dosage: UNK

REACTIONS (4)
  - DYSPHONIA [None]
  - PAIN [None]
  - WEIGHT DECREASED [None]
  - WEIGHT INCREASED [None]
